FAERS Safety Report 26189904 (Version 1)
Quarter: 2025Q4

REPORT INFORMATION
  Report Type: Spontaneous
  Country: GB (occurrence: GB)
  Receive Date: 20251223
  Receipt Date: 20251223
  Transmission Date: 20260117
  Serious: Yes (Other)
  Sender: BAUSCH AND LOMB
  Company Number: GB-GSK-GB2025152434

PATIENT
  Age: 79 Year
  Sex: Male

DRUGS (3)
  1. DEXAMETHASONE [Suspect]
     Active Substance: DEXAMETHASONE
     Indication: Plasma cell myeloma
     Dosage: UNKNOWN
  2. BLENREP [Suspect]
     Active Substance: BELANTAMAB MAFODOTIN-BLMF
     Indication: Plasma cell myeloma
     Dosage: UNKNOWN
  3. VELCADE [Suspect]
     Active Substance: BORTEZOMIB
     Indication: Plasma cell myeloma
     Dosage: UNKNOWN

REACTIONS (1)
  - Thrombocytopenia [Unknown]
